FAERS Safety Report 10150889 (Version 2)
Quarter: 2014Q3

REPORT INFORMATION
  Report Type: Spontaneous
  Country: US (occurrence: US)
  Receive Date: 20140502
  Receipt Date: 20140718
  Transmission Date: 20150326
  Serious: Yes (Disabling, Other)
  Sender: FDA-Public Use
  Company Number: US-ABBVIE-14P-163-1230511-00

PATIENT
  Age: 66 Year
  Sex: Male

DRUGS (1)
  1. ANDROGEL [Suspect]
     Active Substance: TESTOSTERONE
     Indication: BLOOD TESTOSTERONE DECREASED
     Dates: start: 201109, end: 201301

REACTIONS (7)
  - Economic problem [Unknown]
  - Pain [Unknown]
  - Cerebrovascular accident [Unknown]
  - Thrombosis [Unknown]
  - Emotional distress [Unknown]
  - Multiple injuries [Unknown]
  - Disability [Unknown]

NARRATIVE: CASE EVENT DATE: 20130224
